FAERS Safety Report 6174816-8 (Version None)
Quarter: 2009Q2

REPORT INFORMATION
  Report Type: 
  Country: None (occurrence: None)
  Receive Date: 20090430
  Receipt Date: 20081119
  Transmission Date: 20091009
  Serious: No
  Sender: FDA-Public Use
  Company Number: US-ASTRAZENECA-2008UW25854

PATIENT
  Age: 43 Year
  Sex: Female

DRUGS (1)
  1. NEXIUM [Suspect]
     Dosage: 3 CAPSULES A DAY
     Route: 048
     Dates: start: 20060101

REACTIONS (5)
  - CROHN'S DISEASE [None]
  - DRUG INEFFECTIVE [None]
  - EROSIVE OESOPHAGITIS [None]
  - INTESTINAL ULCER [None]
  - SKIN ULCER [None]
